FAERS Safety Report 8210287-5 (Version None)
Quarter: 2012Q1

REPORT INFORMATION
  Report Type: 
  Country: None (occurrence: None)
  Receive Date: 20120314
  Receipt Date: 20111018
  Transmission Date: 20120608
  Serious: Yes (Other)
  Sender: FDA-Public Use
  Company Number: US-ASTRAZENECA-2011SE59401

PATIENT
  Age: 67 Year
  Sex: Female

DRUGS (2)
  1. CRESTOR [Concomitant]
     Route: 048
  2. TOPROL-XL [Suspect]
     Route: 048

REACTIONS (4)
  - DRUG DOSE OMISSION [None]
  - MYOCARDIAL INFARCTION [None]
  - PALPITATIONS [None]
  - HYPOACUSIS [None]
